FAERS Safety Report 8324964-9 (Version None)
Quarter: 2012Q2

REPORT INFORMATION
  Report Type: 
  Country: None (occurrence: None)
  Receive Date: 20120501
  Receipt Date: 20100430
  Transmission Date: 20120825
  Serious: No
  Sender: FDA-Public Use
  Company Number: US-TEVA-2010001217

PATIENT
  Sex: Female

DRUGS (16)
  1. PRANDIN [Concomitant]
     Dates: start: 20060101
  2. SIMVASTATIN [Concomitant]
  3. NUVIGIL [Suspect]
     Indication: SLEEP APNOEA SYNDROME
  4. LISINOPRIL [Concomitant]
  5. TOPROL-XL [Concomitant]
  6. CREON [Concomitant]
  7. SOMA [Concomitant]
  8. XANAX [Concomitant]
  9. OXYCODONE HCL AND ACETAMINOPHEN [Concomitant]
  10. ACTOS [Concomitant]
  11. LASIX [Concomitant]
  12. ASPIRIN [Concomitant]
  13. NUVIGIL [Suspect]
     Indication: NARCOLEPSY
     Dosage: 150 MILLIGRAM;
     Route: 048
     Dates: start: 20100225, end: 20100225
  14. CELEXA [Concomitant]
     Dates: start: 20070101
  15. SYNTHROID [Concomitant]
  16. LYRICA [Concomitant]
     Dates: start: 20070101

REACTIONS (8)
  - NERVOUSNESS [None]
  - RESTLESSNESS [None]
  - ABDOMINAL PAIN UPPER [None]
  - WEIGHT FLUCTUATION [None]
  - CONSTIPATION [None]
  - FEELING ABNORMAL [None]
  - HEADACHE [None]
  - PRURITUS [None]
